FAERS Safety Report 6232951-X (Version None)
Quarter: 2009Q2

REPORT INFORMATION
  Report Type: 
  Country: None (occurrence: None)
  Receive Date: 20090617
  Receipt Date: 20090612
  Transmission Date: 20091009
  Serious: Yes (Life-Threatening)
  Sender: FDA-Public Use
  Company Number: JP-BAYER-200911958BYL

PATIENT
  Age: 69 Year
  Sex: Male
  Weight: 59 kg

DRUGS (4)
  1. NEXAVAR [Suspect]
     Indication: RENAL CELL CARCINOMA STAGE IV
     Dosage: TOTAL DAILY DOSE: 800 MG  UNIT DOSE: 200 MG
     Route: 048
     Dates: start: 20090106, end: 20090116
  2. NEXAVAR [Suspect]
     Dosage: UNIT DOSE: 200 MG
     Route: 048
     Dates: start: 20090227
  3. TAGAMET [Concomitant]
     Route: 048
  4. ZYLORIC [Concomitant]
     Route: 048
     Dates: start: 20090113

REACTIONS (4)
  - ABDOMINAL PAIN [None]
  - HYPERTENSION [None]
  - PANCREATITIS [None]
  - RASH [None]
